FAERS Safety Report 7307337-7 (Version None)
Quarter: 2011Q1

REPORT INFORMATION
  Report Type: 
  Country: None (occurrence: None)
  Receive Date: 20110223
  Receipt Date: 20110222
  Transmission Date: 20110831
  Serious: Yes (Other)
  Sender: FDA-Public Use
  Company Number: US-PFIZER INC-2011038455

PATIENT
  Sex: Female
  Weight: 97.506 kg

DRUGS (2)
  1. GEODON [Suspect]
     Indication: PARANOIA
     Dosage: 20 MG, 2X/DAY
     Route: 048
     Dates: start: 20110219, end: 20110220
  2. WELLBUTRIN [Concomitant]
     Indication: DEPRESSION
     Dosage: UNK

REACTIONS (7)
  - CHEST DISCOMFORT [None]
  - CHEST PAIN [None]
  - PAIN IN EXTREMITY [None]
  - INSOMNIA [None]
  - ABDOMINAL PAIN UPPER [None]
  - BLOOD PRESSURE INCREASED [None]
  - DYSKINESIA [None]
